FAERS Safety Report 6182834-9 (Version None)
Quarter: 2009Q2

REPORT INFORMATION
  Report Type: 
  Country: None (occurrence: None)
  Receive Date: 20090505
  Receipt Date: 20090422
  Transmission Date: 20091009
  Serious: Yes (Hospitalization, Other)
  Sender: FDA-Public Use
  Company Number: PAR_02940_2009

PATIENT
  Age: 62 Year
  Sex: Male

DRUGS (1)
  1. METHYLPREDNISOLONE [Suspect]
     Indication: DRUG USE FOR UNKNOWN INDICATION
     Dosage: 1 G PER DAY FOR 5 DAYS DILUTED IN 500 ML SALINE INTRAVENOUS BOLUS
     Route: 040

REACTIONS (3)
  - ARTERIOVENOUS FISTULA [None]
  - DURAL FISTULA [None]
  - PAIN IN EXTREMITY [None]
